FAERS Safety Report 13699717 (Version 1)
Quarter: 2017Q2

REPORT INFORMATION
  Report Type: Spontaneous
  Country: US (occurrence: US)
  Receive Date: 20170629
  Receipt Date: 20170629
  Transmission Date: 20170830
  Serious: Yes (Hospitalization, Other)
  Sender: FDA-Public Use
  Company Number: US-BRISTOL-MYERS SQUIBB COMPANY-BMS-2017-057452

PATIENT
  Sex: Male
  Weight: 81.19 kg

DRUGS (8)
  1. TIKOSYN [Suspect]
     Active Substance: DOFETILIDE
     Indication: ATRIAL FIBRILLATION
     Dosage: 250 ?G, BID
     Route: 048
     Dates: start: 2014
  2. ELIQUIS [Suspect]
     Active Substance: APIXABAN
     Indication: CEREBROVASCULAR ACCIDENT PROPHYLAXIS
     Dosage: 2.5 MG, BID
     Route: 065
     Dates: start: 2016
  3. LIPITOR [Concomitant]
     Active Substance: ATORVASTATIN CALCIUM
     Indication: HYPERLIPIDAEMIA
     Dosage: 40 MG, QD (AT BEDTIME)
     Route: 065
     Dates: start: 201602
  4. METOPROLOL. [Concomitant]
     Active Substance: METOPROLOL
     Indication: ATRIAL FIBRILLATION
     Dosage: 75 MG, QD
     Route: 065
     Dates: start: 2014
  5. RANEXA [Concomitant]
     Active Substance: RANOLAZINE
     Indication: CORONARY ARTERY DISEASE
     Dosage: 1000 MG, QD
     Route: 065
     Dates: start: 201203
  6. RANEXA [Concomitant]
     Active Substance: RANOLAZINE
     Indication: CHEST PAIN
     Route: 065
  7. TIKOSYN [Suspect]
     Active Substance: DOFETILIDE
     Indication: VENTRICULAR TACHYCARDIA
     Dosage: 125 ?G, UNK
     Route: 065
  8. METOPROLOL. [Concomitant]
     Active Substance: METOPROLOL
     Indication: VENTRICULAR TACHYCARDIA
     Route: 065

REACTIONS (1)
  - Transient ischaemic attack [Unknown]
